FAERS Safety Report 13269173 (Version 2)
Quarter: 2017Q1

REPORT INFORMATION
  Report Type: Report from Study
  Country: CA (occurrence: CA)
  Receive Date: 20170224
  Receipt Date: 20170314
  Transmission Date: 20170428
  Serious: Yes (Other)
  Sender: FDA-Public Use
  Company Number: CA-REGENERON PHARMACEUTICALS, INC.-2017-12337

PATIENT

DRUGS (10)
  1. EYLEA [Suspect]
     Active Substance: AFLIBERCEPT
     Dosage: OU
     Route: 031
     Dates: start: 20160718, end: 20160718
  2. EYLEA [Suspect]
     Active Substance: AFLIBERCEPT
     Indication: NEOVASCULAR AGE-RELATED MACULAR DEGENERATION
     Dosage: OU
     Route: 031
     Dates: start: 20160302, end: 20160302
  3. EYLEA [Suspect]
     Active Substance: AFLIBERCEPT
     Dosage: OU
     Route: 031
     Dates: start: 20160606, end: 20160606
  4. EYLEA [Suspect]
     Active Substance: AFLIBERCEPT
     Dosage: OU
     Route: 031
     Dates: start: 20161017, end: 20161017
  5. EYLEA [Suspect]
     Active Substance: AFLIBERCEPT
     Dosage: OU
     Route: 031
     Dates: start: 20160404, end: 20160404
  6. EYLEA [Suspect]
     Active Substance: AFLIBERCEPT
     Dosage: OU
     Route: 031
     Dates: start: 20160829, end: 20160829
  7. EYLEA [Suspect]
     Active Substance: AFLIBERCEPT
     Dosage: OU
     Route: 031
     Dates: start: 20161219, end: 20161219
  8. EYLEA [Suspect]
     Active Substance: AFLIBERCEPT
     Dosage: OU
     Route: 031
     Dates: start: 20170130, end: 20170130
  9. EYLEA [Suspect]
     Active Substance: AFLIBERCEPT
     Dosage: OU
     Route: 031
     Dates: start: 20161114, end: 20161114
  10. EYLEA [Suspect]
     Active Substance: AFLIBERCEPT
     Dosage: OU
     Route: 031
     Dates: start: 20160502, end: 20160502

REACTIONS (3)
  - Visual acuity reduced [Recovering/Resolving]
  - Blindness transient [Recovering/Resolving]
  - Off label use [Unknown]

NARRATIVE: CASE EVENT DATE: 201603
